FAERS Safety Report 15043487 (Version 2)
Quarter: 2018Q3

REPORT INFORMATION
  Report Type: Spontaneous
  Country: US (occurrence: US)
  Receive Date: 20180621
  Receipt Date: 20180807
  Transmission Date: 20181010
  Serious: Yes (Hospitalization, Other)
  Sender: FDA-Public Use
  Company Number: US-SA-2018SA160696

PATIENT
  Age: 70 Year
  Sex: Female

DRUGS (1)
  1. AUBAGIO [Suspect]
     Active Substance: TERIFLUNOMIDE
     Indication: MULTIPLE SCLEROSIS
     Dosage: 14 MG, QD
     Route: 048
     Dates: start: 20170926

REACTIONS (8)
  - Multiple sclerosis relapse [Unknown]
  - Visual impairment [Unknown]
  - Rehabilitation therapy [Unknown]
  - Corneal oedema [Unknown]
  - Dry eye [Unknown]
  - Dysstasia [Unknown]
  - Hospitalisation [Unknown]
  - Eye operation [Unknown]

NARRATIVE: CASE EVENT DATE: 201801
